FAERS Safety Report 9139080 (Version 1)
Quarter: 2013Q1

REPORT INFORMATION
  Report Type: Spontaneous
  Country: ES (occurrence: ES)
  Receive Date: 20130305
  Receipt Date: 20130305
  Transmission Date: 20140127
  Serious: Yes (Death)
  Sender: FDA-Public Use
  Company Number: ES-ELI_LILLY_AND_COMPANY-ES201302009666

PATIENT
  Age: 47 Year
  Sex: Male

DRUGS (6)
  1. OLANZAPINE [Suspect]
     Dosage: UNK, UNKNOWN
  2. TRANXILIUM [Concomitant]
  3. TRILEPTAL [Concomitant]
  4. ALCOHOL [Concomitant]
  5. CARBAMAZEPINE [Concomitant]
  6. TETRAZEPAM [Concomitant]

REACTIONS (1)
  - Completed suicide [Fatal]
